FAERS Safety Report 7947025-7 (Version None)
Quarter: 2011Q4

REPORT INFORMATION
  Report Type: 
  Country: None (occurrence: None)
  Receive Date: 20111129
  Receipt Date: 20110829
  Transmission Date: 20120403
  Serious: No
  Sender: FDA-Public Use
  Company Number: US-ASTRAZENECA-2011SE51809

PATIENT
  Age: 76 Year
  Sex: Female

DRUGS (4)
  1. VIMOVO [Suspect]
     Indication: OSTEOARTHRITIS
     Route: 048
     Dates: start: 20110601
  2. ATENOLOL [Concomitant]
     Indication: BLOOD PRESSURE
  3. NORVASC [Concomitant]
     Indication: BLOOD PRESSURE
  4. SIMVASTATIN [Concomitant]
     Indication: BLOOD CHOLESTEROL

REACTIONS (2)
  - ABDOMINAL DISCOMFORT [None]
  - TREATMENT NONCOMPLIANCE [None]
